FAERS Safety Report 25949195 (Version 1)
Quarter: 2025Q4

REPORT INFORMATION
  Report Type: Spontaneous
  Country: US (occurrence: None)
  Receive Date: 20251022
  Receipt Date: 20251022
  Transmission Date: 20260117
  Serious: Yes (Other)
  Sender: FDA-CTU
  Company Number: None

PATIENT
  Age: 76 Year
  Sex: Female

DRUGS (1)
  1. RADICAVA ORS [Suspect]
     Active Substance: EDARAVONE
     Dosage: OTHER FREQUENCY : 10 DAY/28 DAY CYCL;?
     Route: 048
     Dates: start: 20250129

REACTIONS (4)
  - Sensory disturbance [None]
  - Burning sensation [None]
  - Rash [None]
  - Hyperaesthesia [None]
